FAERS Safety Report 6339971-5 (Version None)
Quarter: 2009Q3

REPORT INFORMATION
  Report Type: 
  Country: None (occurrence: None)
  Receive Date: 20090903
  Receipt Date: 20090825
  Transmission Date: 20100115
  Serious: Yes (Other)
  Sender: FDA-Public Use
  Company Number: DE-ASTRAZENECA-2009SE07478

PATIENT
  Sex: Female

DRUGS (2)
  1. SYMBICORT [Suspect]
     Dosage: 160MCG/4.5MCG
     Route: 055
  2. SYMBICORT [Suspect]
     Dosage: ONE PUFF OF160 MCG/4.5 MCG IN THE MORNING
     Route: 055

REACTIONS (5)
  - ANAPHYLACTIC SHOCK [None]
  - DYSPNOEA [None]
  - PHARYNGITIS [None]
  - TACHYCARDIA [None]
  - TONSILLAR HYPERTROPHY [None]
